FAERS Safety Report 10065078 (Version 7)
Quarter: 2015Q3

REPORT INFORMATION
  Report Type: Spontaneous
  Country: US (occurrence: US)
  Receive Date: 20140408
  Receipt Date: 20150821
  Transmission Date: 20151125
  Serious: Yes (Death, Life-Threatening, Hospitalization, Other)
  Sender: FDA-Public Use
  Company Number: US-009507513-1404USA004089

PATIENT
  Sex: Female
  Weight: 102.49 kg

DRUGS (2)
  1. JANUVIA [Suspect]
     Active Substance: SITAGLIPTIN PHOSPHATE
     Indication: TYPE 2 DIABETES MELLITUS
     Dosage: 50 MG, QD
     Route: 048
     Dates: start: 20090203, end: 20120701
  2. BYETTA [Suspect]
     Active Substance: EXENATIDE
     Indication: TYPE 2 DIABETES MELLITUS
     Dosage: 10 MICROGRAM, BID
     Dates: start: 20070601, end: 20070701

REACTIONS (43)
  - Dizziness [Unknown]
  - Malnutrition [Unknown]
  - Cardiac disorder [Unknown]
  - Angiopathy [Not Recovered/Not Resolved]
  - Hyponatraemia [Recovered/Resolved]
  - Bile duct stent insertion [Unknown]
  - Localised intraabdominal fluid collection [Unknown]
  - Spleen disorder [Unknown]
  - Splenic calcification [Unknown]
  - Lymphadenopathy [Unknown]
  - Hyperkalaemia [Unknown]
  - Peptic ulcer [Unknown]
  - Oedema peripheral [Unknown]
  - Gastrointestinal disorder [Unknown]
  - Pancreaticoduodenectomy [Unknown]
  - Hyperglycaemia [Unknown]
  - Asthenia [Unknown]
  - Skin oedema [Unknown]
  - Cholangitis [Not Recovered/Not Resolved]
  - Heart rate decreased [Unknown]
  - Metastases to lymph nodes [Unknown]
  - Postoperative renal failure [Recovering/Resolving]
  - Bile duct stent insertion [Unknown]
  - Enterococcal infection [Unknown]
  - Drug-induced liver injury [Unknown]
  - Cholestasis [Unknown]
  - Bile duct stent removal [Unknown]
  - Faecal volume increased [Unknown]
  - Hypothyroidism [Unknown]
  - Haemorrhagic anaemia [Unknown]
  - Atelectasis [Unknown]
  - Adenocarcinoma pancreas [Fatal]
  - Ascites [Recovering/Resolving]
  - Localised intraabdominal fluid collection [Unknown]
  - Pleural effusion [Unknown]
  - Renal atrophy [Unknown]
  - Spinal osteoarthritis [Unknown]
  - Depression [Unknown]
  - Acrochordon [Unknown]
  - Hypercholesterolaemia [Unknown]
  - Aortic arteriosclerosis [Unknown]
  - Hepatic steatosis [Unknown]
  - Critical illness polyneuropathy [Unknown]

NARRATIVE: CASE EVENT DATE: 2010
